FAERS Safety Report 7380630-8 (Version None)
Quarter: 2011Q1

REPORT INFORMATION
  Report Type: 
  Country: None (occurrence: None)
  Receive Date: 20110325
  Receipt Date: 20110325
  Transmission Date: 20110831
  Serious: No
  Sender: FDA-Public Use
  Company Number: None

PATIENT
  Age: 82 Year
  Sex: Male
  Weight: 92.0802 kg

DRUGS (2)
  1. FLEBOGAMMA [Suspect]
     Dosage: 1 X 10 GM + 1X 5 GM IV DRIP
     Route: 041
  2. FLEBOGAMMA [Suspect]
     Indication: MYASTHENIA GRAVIS
     Dosage: 1 X 20 GM IV DRIP
     Route: 041
     Dates: start: 20110321, end: 20110323

REACTIONS (3)
  - INFUSION RELATED REACTION [None]
  - HEADACHE [None]
  - BLOOD PRESSURE INCREASED [None]
